FAERS Safety Report 5456589-7 (Version None)
Quarter: 2007Q3

REPORT INFORMATION
  Report Type: 
  Country: None (occurrence: None)
  Receive Date: 20070918
  Receipt Date: 20070906
  Transmission Date: 20080115
  Serious: Yes (Disabling, Other)
  Sender: FDA-Public Use
  Company Number: FR-SANOFI-SYNTHELABO-A01200710114

PATIENT
  Age: 77 Year
  Sex: Male

DRUGS (2)
  1. PREVISCAN [Suspect]
     Indication: PHLEBITIS
     Dosage: UNK
     Route: 065
  2. PLAVIX [Suspect]
     Indication: AORTIC ANEURYSM
     Route: 048
     Dates: start: 20060101

REACTIONS (2)
  - CEREBRAL HAEMATOMA [None]
  - PHLEBITIS [None]
